FAERS Safety Report 25460558 (Version 1)
Quarter: 2025Q2

REPORT INFORMATION
  Report Type: Spontaneous
  Country: DE (occurrence: None)
  Receive Date: 20250620
  Receipt Date: 20250620
  Transmission Date: 20250717
  Serious: Yes (Death, Other)
  Sender: INCYTE
  Company Number: DE-EVENT-003219

PATIENT

DRUGS (5)
  1. PEMAZYRE [Suspect]
     Active Substance: PEMIGATINIB
     Route: 065
  2. CISPLATIN [Suspect]
     Active Substance: CISPLATIN
     Route: 065
  3. FUTIBATINIB [Suspect]
     Active Substance: FUTIBATINIB
     Route: 065
  4. FLUOROURACIL\LEUCOVORIN CALCIUM\OXALIPLATIN [Suspect]
     Active Substance: FLUOROURACIL\LEUCOVORIN CALCIUM\OXALIPLATIN
     Route: 065
  5. GEMCITABINE [Suspect]
     Active Substance: GEMCITABINE

REACTIONS (4)
  - Death [Fatal]
  - Metastases to lung [Unknown]
  - Metastases to liver [Unknown]
  - Metastases to peritoneum [Unknown]
